FAERS Safety Report 10598211 (Version 1)
Quarter: 2014Q4

REPORT INFORMATION
  Report Type: Spontaneous
  Country: US (occurrence: None)
  Receive Date: 20141120
  Receipt Date: 20141120
  Transmission Date: 20150529
  Serious: No
  Sender: FDA-Public Use
  Company Number: None

PATIENT
  Age: 43 Year
  Sex: Male
  Weight: 101.4 kg

DRUGS (1)
  1. CIPROFLOXACIN. [Suspect]
     Active Substance: CIPROFLOXACIN
     Route: 042
     Dates: start: 20140906, end: 20140906

REACTIONS (2)
  - Injection site pruritus [None]
  - Injection site rash [None]

NARRATIVE: CASE EVENT DATE: 20140906
